FAERS Safety Report 25232133 (Version 1)
Quarter: 2025Q2

REPORT INFORMATION
  Report Type: Other
  Country: FR (occurrence: FR)
  Receive Date: 20250423
  Receipt Date: 20250423
  Transmission Date: 20250717
  Serious: Yes (Hospitalization)
  Sender: DENTSPLY
  Company Number: FR-DENTSPLY-2025SCDP000119

PATIENT
  Age: 3 Month
  Sex: Male
  Weight: 5.6 kg

DRUGS (1)
  1. LIDOCAINE\PRILOCAINE [Suspect]
     Active Substance: LIDOCAINE\PRILOCAINE
     Indication: Application site anaesthesia
     Route: 003
     Dates: start: 20250331, end: 20250331

REACTIONS (1)
  - Burns second degree [None]

NARRATIVE: CASE EVENT DATE: 20250331
